FAERS Safety Report 5877570-X (Version None)
Quarter: 2008Q3

REPORT INFORMATION
  Report Type: 
  Country: None (occurrence: None)
  Receive Date: 20080911
  Receipt Date: 20080904
  Transmission Date: 20090109
  Serious: Yes (Other)
  Sender: FDA-Public Use
  Company Number: PHHY2008BR20325

PATIENT
  Sex: Female
  Weight: 70 kg

DRUGS (1)
  1. PARLODEL [Suspect]
     Indication: BLOOD PROLACTIN INCREASED
     Dosage: 2.5 MG/DAY
     Route: 048
     Dates: start: 20080828

REACTIONS (7)
  - ACNE [None]
  - DRUG HYPERSENSITIVITY [None]
  - EYE SWELLING [None]
  - HEADACHE [None]
  - PRURITUS [None]
  - SKIN BURNING SENSATION [None]
  - SWELLING FACE [None]
